FAERS Safety Report 25538314 (Version 1)
Quarter: 2025Q3

REPORT INFORMATION
  Report Type: Spontaneous
  Country: GB (occurrence: GB)
  Receive Date: 20250710
  Receipt Date: 20250710
  Transmission Date: 20251020
  Serious: Yes (Life-Threatening, Other)
  Sender: BIOGEN
  Company Number: None

PATIENT
  Sex: Female

DRUGS (1)
  1. TYSABRI [Suspect]
     Active Substance: NATALIZUMAB
     Indication: Adverse drug reaction
     Dosage: 300MG EVERY 4 WEEKS
     Route: 050
     Dates: start: 20110215, end: 20250627

REACTIONS (1)
  - Ovarian cancer [Not Recovered/Not Resolved]
